FAERS Safety Report 4751186-0 (Version None)
Quarter: 2005Q3

REPORT INFORMATION
  Report Type: 
  Country: None (occurrence: None)
  Receive Date: 20050822
  Receipt Date: 20050811
  Transmission Date: 20060218
  Serious: Yes (Hospitalization)
  Sender: FDA-Public Use
  Company Number: 2005-02-0995

PATIENT
  Age: 6 Year
  Sex: Female

DRUGS (8)
  1. BETAMETHASONE [Suspect]
     Indication: INFLUENZA LIKE ILLNESS
     Dosage: ORAL
     Route: 048
     Dates: start: 20041108, end: 20041112
  2. CEFPODOXIME PROXETIL [Suspect]
     Indication: PYREXIA
     Dosage: SEE IMAGE
     Route: 048
     Dates: start: 20041112, end: 20041112
  3. BETAMETHASONE SODIUM PHOSPHATE [Suspect]
     Indication: URTICARIA
     Dosage: INTRAMUSCULAR
     Route: 030
  4. ALFATIL ORAL [Suspect]
     Indication: INFLUENZA LIKE ILLNESS
     Dosage: ORAL
     Route: 048
     Dates: start: 20041110, end: 20041112
  5. EFFERALGAN (PARACETAMOL) [Concomitant]
  6. POLERY SYRUP [Concomitant]
  7. ADVIL [Concomitant]
  8. ANTIHISTAMINES (NOS) [Concomitant]

REACTIONS (7)
  - C-REACTIVE PROTEIN INCREASED [None]
  - FACE OEDEMA [None]
  - HYPERSENSITIVITY [None]
  - LUNG CREPITATION [None]
  - LUNG DISORDER [None]
  - RALES [None]
  - URTICARIA [None]
